FAERS Safety Report 9071023 (Version 1)
Quarter: 2013Q1

REPORT INFORMATION
  Report Type: Spontaneous
  Country: US (occurrence: US)
  Receive Date: 20130206
  Receipt Date: 20130206
  Transmission Date: 20140127
  Serious: No
  Sender: FDA-Public Use
  Company Number: US-ALLERGAN-1208088US

PATIENT
  Age: 61 Year
  Sex: Female

DRUGS (3)
  1. RESTASIS? [Suspect]
     Indication: DRY EYE
     Dosage: 2 GTT, BID
     Route: 047
     Dates: start: 20120523, end: 20120605
  2. RESTASIS? [Suspect]
     Dosage: 2 GTT, BID
     Route: 047
     Dates: start: 20120515, end: 20120523
  3. SYSTANE [Concomitant]
     Indication: DRY EYE
     Dosage: UNK
     Route: 047

REACTIONS (5)
  - Neck pain [Not Recovered/Not Resolved]
  - Chills [Not Recovered/Not Resolved]
  - Arthropathy [Unknown]
  - Vision blurred [Unknown]
  - Eye irritation [Unknown]
